FAERS Safety Report 8461796-5 (Version None)
Quarter: 2012Q2

REPORT INFORMATION
  Report Type: 
  Country: None (occurrence: None)
  Receive Date: 20120625
  Receipt Date: 20120615
  Transmission Date: 20120825
  Serious: Yes (Hospitalization)
  Sender: FDA-Public Use
  Company Number: US-BRISTOL-MYERS SQUIBB COMPANY-15961386

PATIENT
  Age: 49 Year
  Sex: Male
  Weight: 92 kg

DRUGS (2)
  1. IPILIMUMAB [Suspect]
     Indication: MALIGNANT MELANOMA
     Dosage: DOSE 10 MG/KG, DOSE LAST COURSE 921 MG LAST DATE ADMINISTERED IS 03AUG2011
     Route: 042
     Dates: start: 20110613
  2. LEUKINE [Suspect]
     Indication: MALIGNANT MELANOMA
     Dosage: DOSE: 250 MCG/DAY (DAY 1-14) LAST ADMINISTERED DATE IS 08AUG2011
     Route: 058
     Dates: start: 20110613

REACTIONS (6)
  - LARGE INTESTINAL HAEMORRHAGE [None]
  - PRURITUS [None]
  - HYPERHIDROSIS [None]
  - CHILLS [None]
  - DIARRHOEA [None]
  - ABDOMINAL PAIN [None]
